FAERS Safety Report 11988293 (Version 1)
Quarter: 2016Q1

REPORT INFORMATION
  Report Type: Spontaneous
  Country: US (occurrence: US)
  Receive Date: 20160202
  Receipt Date: 20160202
  Transmission Date: 20160526
  Serious: Yes (Hospitalization)
  Sender: FDA-Public Use
  Company Number: US-TAKEDA-2016MPI000516

PATIENT
  Age: 73 Year
  Sex: Female
  Weight: 105.2 kg

DRUGS (24)
  1. VELCADE [Suspect]
     Active Substance: BORTEZOMIB
     Dosage: 2.15 MG, UNK
     Route: 058
     Dates: start: 20151022, end: 20151119
  2. MELPHALAN [Suspect]
     Active Substance: MELPHALAN
     Indication: PLASMA CELL MYELOMA
     Dosage: 20 MG, QD
     Route: 048
     Dates: start: 20150730, end: 20150802
  3. VANCOMYCIN [Concomitant]
     Active Substance: VANCOMYCIN
     Indication: INFECTION
     Dosage: UNK
     Route: 065
     Dates: end: 20150725
  4. NEURONTIN [Concomitant]
     Active Substance: GABAPENTIN
     Dosage: 300 MG, BID
     Route: 048
  5. ATORVASTATIN [Concomitant]
     Active Substance: ATORVASTATIN
     Dosage: UNK
     Route: 065
  6. MELPHALAN [Suspect]
     Active Substance: MELPHALAN
     Dosage: 10 MG, UNK
     Route: 048
     Dates: start: 20151022, end: 20151025
  7. VANCOMYCIN [Concomitant]
     Active Substance: VANCOMYCIN
     Indication: CLOSTRIDIUM DIFFICILE INFECTION
     Dosage: UNK
     Route: 065
     Dates: end: 20150725
  8. ONDANSETRON [Concomitant]
     Active Substance: ONDANSETRON
     Indication: PROPHYLAXIS OF NAUSEA AND VOMITING
     Dosage: 8 MG, UNK
     Route: 048
     Dates: start: 20150730
  9. VELCADE [Suspect]
     Active Substance: BORTEZOMIB
     Dosage: 2.1 MG, UNK
     Route: 058
     Dates: start: 20150910, end: 20151008
  10. ZYRTEC [Concomitant]
     Active Substance: CETIRIZINE HYDROCHLORIDE
     Indication: RHINORRHOEA
     Dosage: 10 MG, UNK
     Route: 048
  11. FELODIPINE. [Concomitant]
     Active Substance: FELODIPINE
     Dosage: UNK
     Route: 065
  12. NORMAL SALINE [Concomitant]
     Active Substance: SODIUM CHLORIDE
     Indication: CLOSTRIDIUM DIFFICILE INFECTION
     Dosage: 500 IU, UNK
     Route: 042
     Dates: start: 20150807
  13. VELCADE [Suspect]
     Active Substance: BORTEZOMIB
     Indication: PLASMA CELL MYELOMA
     Dosage: 2.8 MG, UNK
     Route: 058
     Dates: start: 20150730, end: 20150831
  14. PREDNISONE. [Suspect]
     Active Substance: PREDNISONE
     Dosage: 100 MG, UNK
     Route: 048
     Dates: start: 20150910, end: 20150913
  15. PREDNISONE. [Suspect]
     Active Substance: PREDNISONE
     Dosage: 100 MG, UNK
     Route: 048
     Dates: start: 20151022, end: 20151025
  16. ALLOPURINOL. [Concomitant]
     Active Substance: ALLOPURINOL
     Dosage: 300 MG, BID
     Route: 048
  17. WARFARIN [Concomitant]
     Active Substance: WARFARIN
     Indication: CARDIAC VALVE PROSTHESIS USER
     Dosage: UNK
  18. METOPROLOL. [Concomitant]
     Active Substance: METOPROLOL
     Dosage: UNK
     Route: 065
  19. POTASSIUM CHLORIDE. [Concomitant]
     Active Substance: POTASSIUM CHLORIDE
     Indication: HYPOKALAEMIA
     Dosage: UNK
     Route: 048
     Dates: start: 20150807, end: 20150809
  20. FILGRASTIM [Concomitant]
     Active Substance: FILGRASTIM
     Indication: WHITE BLOOD CELL COUNT DECREASED
     Dosage: 480 ?G, QD
     Route: 058
     Dates: start: 20150814, end: 20150815
  21. PREDNISONE. [Suspect]
     Active Substance: PREDNISONE
     Indication: PLASMA CELL MYELOMA
     Dosage: 120 MG, QD
     Route: 048
     Dates: start: 20150730, end: 20150802
  22. MELPHALAN [Suspect]
     Active Substance: MELPHALAN
     Dosage: 14 MG, UNK
     Route: 048
     Dates: start: 20150910, end: 20150913
  23. ALLOPURINOL. [Concomitant]
     Active Substance: ALLOPURINOL
     Dosage: 200 MG, QD
     Route: 048
     Dates: start: 20150730
  24. CHLORMADINONE [Concomitant]
     Active Substance: CHLORMADINONE
     Indication: WEIGHT DECREASED
     Dosage: UNK
     Route: 065

REACTIONS (13)
  - Clostridium difficile infection [Recovered/Resolved]
  - Hypoalbuminaemia [Unknown]
  - Dizziness [Unknown]
  - White blood cell count decreased [Recovering/Resolving]
  - Hypomagnesaemia [Recovered/Resolved]
  - Fatigue [Unknown]
  - Thrombocytopenia [Recovering/Resolving]
  - Anaemia [Recovering/Resolving]
  - Decreased appetite [Unknown]
  - Febrile neutropenia [Recovered/Resolved]
  - Weight decreased [Recovering/Resolving]
  - Rectal haemorrhage [Unknown]
  - Hypokalaemia [Recovered/Resolved]

NARRATIVE: CASE EVENT DATE: 20150730
